FAERS Safety Report 6342207-2 (Version None)
Quarter: 2009Q3

REPORT INFORMATION
  Report Type: 
  Country: None (occurrence: None)
  Receive Date: 20090903
  Receipt Date: 20090903
  Transmission Date: 20100115
  Serious: Yes (Other)
  Sender: FDA-Public Use
  Company Number: None

PATIENT
  Age: 26 Year
  Sex: Male

DRUGS (1)
  1. NEOSTIGMINE [Suspect]
     Indication: COLONIC PSEUDO-OBSTRUCTION
     Dosage: 2.5 GM INTRACAVERNOUS
     Route: 017

REACTIONS (3)
  - COLONIC OBSTRUCTION [None]
  - INFLAMMATION [None]
  - PANCREATITIS [None]
